FAERS Safety Report 17366990 (Version 1)
Quarter: 2020Q1

REPORT INFORMATION
  Report Type: Spontaneous
  Country: FR (occurrence: FR)
  Receive Date: 20200204
  Receipt Date: 20200204
  Transmission Date: 20200409
  Serious: Yes (Life-Threatening, Other)
  Sender: FDA-Public Use
  Company Number: FR-PFIZER INC-2020045672

PATIENT
  Age: 68 Year
  Sex: Female
  Weight: 45 kg

DRUGS (7)
  1. HYDROXYZINE ARROW [Interacting]
     Active Substance: HYDROXYZINE HYDROCHLORIDE
     Indication: PREMEDICATION
     Dosage: 25 MG
     Route: 048
     Dates: start: 20191230, end: 20191230
  2. DIFFU K [Concomitant]
     Active Substance: POTASSIUM CHLORIDE
     Dosage: UNK
  3. BISOCE [Interacting]
     Active Substance: BISOPROLOL
     Indication: ATRIAL FIBRILLATION
     Dosage: 2.5 MG, QD (1X/DAY)
     Route: 048
     Dates: start: 20191230, end: 20200101
  4. PRADAXA [Concomitant]
     Active Substance: DABIGATRAN ETEXILATE MESYLATE
     Dosage: UNK
  5. FUROSEMIDE. [Concomitant]
     Active Substance: FUROSEMIDE
     Dosage: UNK
  6. HYDROXYZINE RENAUDIN [Interacting]
     Active Substance: HYDROXYZINE HYDROCHLORIDE
     Indication: PREMEDICATION
     Dosage: 50 MG, TOTAL
     Route: 048
     Dates: start: 20191231, end: 20191231
  7. CORDARONE [Suspect]
     Active Substance: AMIODARONE HYDROCHLORIDE
     Indication: ATRIAL FIBRILLATION
     Dosage: 800 MG, QD (1X/DAY)
     Route: 048
     Dates: start: 20191231, end: 20200101

REACTIONS (2)
  - Torsade de pointes [Recovered/Resolved]
  - Drug interaction [Unknown]

NARRATIVE: CASE EVENT DATE: 202001
